FAERS Safety Report 4989593-3 (Version None)
Quarter: 2006Q2

REPORT INFORMATION
  Report Type: 
  Country: None (occurrence: None)
  Receive Date: 20060502
  Receipt Date: 20051214
  Transmission Date: 20061013
  Serious: Yes (Hospitalization)
  Sender: FDA-Public Use
  Company Number: US-MERCK-0512USA02341

PATIENT
  Age: 69 Year
  Sex: Male
  Weight: 66 kg

DRUGS (3)
  1. VIOXX [Suspect]
     Route: 048
     Dates: start: 19990101
  2. VIOXX [Suspect]
     Route: 048
     Dates: start: 20031101
  3. SYNTHROID [Concomitant]
     Route: 065

REACTIONS (16)
  - ABDOMINAL PAIN LOWER [None]
  - ARTHROPATHY [None]
  - CARDIAC DISORDER [None]
  - CEREBROVASCULAR ACCIDENT [None]
  - CHANGE OF BOWEL HABIT [None]
  - CHEST PAIN [None]
  - DIPLOPIA [None]
  - DIVERTICULUM [None]
  - DIZZINESS [None]
  - FALL [None]
  - HAEMORRHOIDS [None]
  - HEADACHE [None]
  - HERNIA [None]
  - RECTAL HAEMORRHAGE [None]
  - SACROILIITIS [None]
  - SPINAL OSTEOARTHRITIS [None]
